FAERS Safety Report 9008759 (Version 6)
Quarter: 2017Q2

REPORT INFORMATION
  Report Type: Report from Study
  Country: US (occurrence: US)
  Receive Date: 20130111
  Receipt Date: 20170626
  Transmission Date: 20170830
  Serious: Yes (Death, Life-Threatening, Hospitalization)
  Sender: FDA-Public Use
  Company Number: US-MERCK-1301USA003585

PATIENT
  Age: 4 Year
  Sex: Male
  Weight: 17.2 kg

DRUGS (4)
  1. VORINOSTAT [Suspect]
     Active Substance: VORINOSTAT
     Dosage: 230 MG/M2, ONLY ON MONDAY, WEDNESDAY AND FRIDAY, 28-DAYS CYCLE
     Route: 048
     Dates: start: 20130306, end: 20130328
  2. VORINOSTAT [Suspect]
     Active Substance: VORINOSTAT
     Indication: BRAIN STEM GLIOMA
     Dosage: 230 MG/M2 ON DAYS 1-5, QW PER 6 WEEKS
     Route: 048
     Dates: start: 20120919
  3. VORINOSTAT [Suspect]
     Active Substance: VORINOSTAT
     Dosage: 230 MG/M2, ONLY ON MONDAY, WEDNESDAY AND FRIDAY, 28-DAYS CYCLE
     Route: 048
     Dates: start: 20130108, end: 20130109
  4. VORINOSTAT [Suspect]
     Active Substance: VORINOSTAT
     Dosage: 230 MG/M2, QD, 28-DAYS CYCLE
     Route: 048
     Dates: start: 20121113, end: 20130101

REACTIONS (3)
  - Dyspnoea [Recovering/Resolving]
  - Neutrophil count decreased [Not Recovered/Not Resolved]
  - Disease progression [Fatal]

NARRATIVE: CASE EVENT DATE: 20130102
